FAERS Safety Report 10380252 (Version 1)
Quarter: 2014Q3

REPORT INFORMATION
  Report Type: Spontaneous
  Country: US (occurrence: None)
  Receive Date: 20140811
  Receipt Date: 20140811
  Transmission Date: 20150326
  Serious: No
  Sender: FDA-Public Use
  Company Number: None

PATIENT
  Age: 55 Year
  Sex: Female
  Weight: 58.97 kg

DRUGS (1)
  1. RECLAST [Suspect]
     Active Substance: ZOLEDRONIC ACID
     Indication: OSTEOPOROSIS
     Dosage: YEARLY
     Route: 042

REACTIONS (17)
  - Pain in extremity [None]
  - Swelling face [None]
  - Gingival swelling [None]
  - Glossodynia [None]
  - Migraine [None]
  - Paraesthesia [None]
  - Ear pain [None]
  - Oral pruritus [None]
  - Lip swelling [None]
  - Headache [None]
  - Throat irritation [None]
  - Urticaria [None]
  - Hypoaesthesia [None]
  - Oedema mouth [None]
  - Gingival pruritus [None]
  - Erythema [None]
  - Toothache [None]

NARRATIVE: CASE EVENT DATE: 20140715
